FAERS Safety Report 9799548 (Version 2)
Quarter: 2015Q3

REPORT INFORMATION
  Report Type: Spontaneous
  Country: US (occurrence: US)
  Receive Date: 20140106
  Receipt Date: 20150806
  Transmission Date: 20151125
  Serious: No
  Sender: FDA-Public Use
  Company Number: US-GILEAD-2010-0030130

PATIENT
  Age: 49 Year
  Sex: Female

DRUGS (26)
  1. VITAMIN C [Concomitant]
     Active Substance: ASCORBIC ACID
  2. IBUPROFEN. [Concomitant]
     Active Substance: IBUPROFEN
  3. FUROSEMIDE. [Concomitant]
     Active Substance: FUROSEMIDE
  4. CALTRATE [Concomitant]
     Active Substance: CALCIUM CARBONATE
  5. BENAZEPRIL [Concomitant]
     Active Substance: BENAZEPRIL HYDROCHLORIDE
  6. NORVIR [Concomitant]
     Active Substance: RITONAVIR
  7. LETAIRIS [Suspect]
     Active Substance: AMBRISENTAN
     Indication: PULMONARY ARTERIAL HYPERTENSION
     Route: 048
     Dates: start: 20080701
  8. ALBUTEROL. [Concomitant]
     Active Substance: ALBUTEROL
  9. AMOXICILLIN. [Concomitant]
     Active Substance: AMOXICILLIN
  10. SPIRONOLACTONE. [Concomitant]
     Active Substance: SPIRONOLACTONE
  11. CALCIUM [Concomitant]
     Active Substance: CALCIUM
  12. POTASSIUM [Concomitant]
     Active Substance: POTASSIUM
  13. ISENTRESS [Concomitant]
     Active Substance: RALTEGRAVIR POTASSIUM
  14. ACYCLOVIR. [Concomitant]
     Active Substance: ACYCLOVIR
  15. MULTIVITAMIN [Concomitant]
     Active Substance: VITAMINS
  16. PREZISTA [Concomitant]
     Active Substance: DARUNAVIR ETHANOLATE
  17. LANOXIN [Concomitant]
     Active Substance: DIGOXIN
  18. PROMETH /CODEINE [Concomitant]
  19. OMEGA 3 [Concomitant]
     Active Substance: OMEGA-3 FATTY ACIDS
  20. CLOTRIMAZOLE. [Concomitant]
     Active Substance: CLOTRIMAZOLE
  21. WARFARIN [Concomitant]
     Active Substance: WARFARIN
  22. QUININE SULFATE. [Concomitant]
     Active Substance: QUININE SULFATE
  23. DIPHEN AF [Concomitant]
  24. DILTIAZEM [Concomitant]
     Active Substance: DILTIAZEM
  25. AZITHROMYCIN [Concomitant]
     Active Substance: AZITHROMYCIN ANHYDROUS
  26. VITAMIN E [Concomitant]
     Active Substance: .ALPHA.-TOCOPHEROL

REACTIONS (2)
  - Cough [Unknown]
  - Infection [Unknown]
